FAERS Safety Report 13238530 (Version 1)
Quarter: 2017Q1

REPORT INFORMATION
  Report Type: Spontaneous
  Country: US (occurrence: US)
  Receive Date: 20170216
  Receipt Date: 20170216
  Transmission Date: 20170428
  Serious: Yes (Other)
  Sender: FDA-Public Use
  Company Number: US-ACTAVIS-2016-04915

PATIENT
  Sex: Female
  Weight: 78.9 kg

DRUGS (6)
  1. ARIMIDEX [Suspect]
     Active Substance: ANASTROZOLE
     Indication: NEOPLASM MALIGNANT
     Dosage: UNKNOWN
     Route: 065
  2. AROMASIN [Suspect]
     Active Substance: EXEMESTANE
     Indication: NEOPLASM MALIGNANT
     Dosage: UNKNOWN DAILY
     Route: 065
     Dates: start: 201512
  3. LUPRON [Suspect]
     Active Substance: LEUPROLIDE ACETATE
     Indication: MENOPAUSE
     Dosage: UNK UNK, 1/WEEK
     Route: 050
  4. TAMOXIFEN CITRATE (ACTAVIS LABORATORIES FL) [Suspect]
     Active Substance: TAMOXIFEN CITRATE
     Dosage: UNKNOWN
     Route: 065
  5. FEMARA [Suspect]
     Active Substance: LETROZOLE
     Indication: NEOPLASM MALIGNANT
     Dosage: UNKNOWN
     Route: 065
  6. TAMOXIFEN CITRATE (ACTAVIS LABORATORIES FL) [Suspect]
     Active Substance: TAMOXIFEN CITRATE
     Indication: NEOPLASM MALIGNANT
     Dosage: UNKNOWN
     Route: 065

REACTIONS (3)
  - Blood triglycerides increased [Unknown]
  - Blood cholesterol increased [Unknown]
  - Malignant neoplasm progression [Unknown]
